FAERS Safety Report 6493299-1 (Version None)
Quarter: 2009Q4

REPORT INFORMATION
  Report Type: 
  Country: None (occurrence: None)
  Receive Date: 20091209
  Receipt Date: 20091207
  Transmission Date: 20100525
  Serious: Yes (Death, Hospitalization)
  Sender: FDA-Public Use
  Company Number: 2009029216

PATIENT
  Age: 83 Year
  Sex: Male
  Weight: 71.2 kg

DRUGS (1)
  1. TREANDA [Suspect]
     Indication: WALDENSTROM'S MACROGLOBULINAEMIA
     Dosage: 90 MG (90 MG/M2), INTRAVENOUS
     Route: 042
     Dates: start: 20091116, end: 20091118

REACTIONS (3)
  - FEBRILE NEUTROPENIA [None]
  - PNEUMONIA [None]
  - RESPIRATORY ARREST [None]
